FAERS Safety Report 7077257-4 (Version None)
Quarter: 2010Q4

REPORT INFORMATION
  Report Type: 
  Country: None (occurrence: None)
  Receive Date: 20101101
  Receipt Date: 20080911
  Transmission Date: 20110411
  Serious: Yes (Other)
  Sender: FDA-Public Use
  Company Number: NZ-ROCHE-737316

PATIENT

DRUGS (3)
  1. HERCEPTIN [Suspect]
     Route: 065
  2. XELODA [Suspect]
     Route: 065
  3. XELODA [Suspect]
     Route: 065

REACTIONS (2)
  - DISEASE PROGRESSION [None]
  - OEDEMA [None]
